FAERS Safety Report 12510266 (Version 6)
Quarter: 2018Q2

REPORT INFORMATION
  Report Type: Spontaneous
  Country: US (occurrence: US)
  Receive Date: 20160629
  Receipt Date: 20180514
  Transmission Date: 20180711
  Serious: No
  Sender: FDA-Public Use
  Company Number: US-ACTELION-A-NJ2016-138391

PATIENT
  Age: 60 Year
  Sex: Female
  Weight: 69.84 kg

DRUGS (3)
  1. SILDENAFIL. [Concomitant]
     Active Substance: SILDENAFIL
  2. OPSUMIT [Suspect]
     Active Substance: MACITENTAN
     Indication: PULMONARY ARTERIAL HYPERTENSION
     Dosage: 10 MG, QD
     Route: 048
     Dates: start: 20141226
  3. FAMOTIDINE. [Concomitant]
     Active Substance: FAMOTIDINE

REACTIONS (10)
  - Cough [Unknown]
  - Anxiety [Unknown]
  - Stress [Unknown]
  - Throat irritation [Unknown]
  - Nasopharyngitis [Unknown]
  - Seasonal allergy [Unknown]
  - Palpitations [Unknown]
  - Sneezing [Unknown]
  - Multiple allergies [Unknown]
  - Tooth abscess [Unknown]
